FAERS Safety Report 13842980 (Version 1)
Quarter: 2017Q3

REPORT INFORMATION
  Report Type: Spontaneous
  Country: US (occurrence: US)
  Receive Date: 20170808
  Receipt Date: 20170808
  Transmission Date: 20171127
  Serious: No
  Sender: FDA-Public Use
  Company Number: US-BAYER-2017-151295

PATIENT
  Age: 91 Year
  Sex: Male
  Weight: 68.03 kg

DRUGS (2)
  1. AMITIZA [Concomitant]
     Active Substance: LUBIPROSTONE
  2. MIRALAX [Suspect]
     Active Substance: POLYETHYLENE GLYCOL 3350
     Indication: GASTROINTESTINAL DISORDER
     Dosage: 1 DF, UNK
     Route: 048
     Dates: start: 20170801, end: 20170802

REACTIONS (2)
  - Circumstance or information capable of leading to medication error [Unknown]
  - Off label use [Unknown]

NARRATIVE: CASE EVENT DATE: 20170801
